FAERS Safety Report 8820487 (Version 1)
Quarter: 2012Q4

REPORT INFORMATION
  Report Type: 
  Country: US (occurrence: US)
  Receive Date: 20121002
  Receipt Date: 20121002
  Transmission Date: 20130627
  Serious: Yes (Disabling)
  Sender: FDA-Public Use
  Company Number: US-ASTRAZENECA-2012SE73971

PATIENT
  Age: 46 Year
  Sex: Female
  Weight: 77.1 kg

DRUGS (4)
  1. NEXIUM [Suspect]
     Indication: GASTROOESOPHAGEAL REFLUX DISEASE
     Route: 048
     Dates: start: 201105, end: 201205
  2. OMEPRAZOLE [Suspect]
     Indication: GASTROOESOPHAGEAL REFLUX DISEASE
     Route: 048
     Dates: end: 201105
  3. OMEPRAZOLE [Suspect]
     Indication: GASTROOESOPHAGEAL REFLUX DISEASE
     Route: 048
     Dates: end: 201105
  4. UNSPECIFIED [Concomitant]

REACTIONS (12)
  - Road traffic accident [Unknown]
  - Abdominal distension [Unknown]
  - Crohn^s disease [Unknown]
  - Diverticulitis [Unknown]
  - Osteopenia [Unknown]
  - Osteoarthritis [Unknown]
  - Fibromyalgia [Unknown]
  - Rheumatoid arthritis [Unknown]
  - Flatulence [Unknown]
  - Eructation [Unknown]
  - Drug dose omission [Unknown]
  - Drug ineffective [Unknown]
